FAERS Safety Report 9058772 (Version 1)
Quarter: 2013Q1

REPORT INFORMATION
  Report Type: Spontaneous
  Country: EC (occurrence: EC)
  Receive Date: 20130204
  Receipt Date: 20130204
  Transmission Date: 20140127
  Serious: Yes (Death, Hospitalization, Other)
  Sender: FDA-Public Use
  Company Number: PHHY2013EC009756

PATIENT
  Age: 72 None
  Sex: Female

DRUGS (1)
  1. RASILEZ HCT [Suspect]
     Dosage: UNK UKN, UNK
     Route: 048
     Dates: start: 20110920, end: 20120807

REACTIONS (2)
  - Hepatic cancer [Fatal]
  - Hepatic cirrhosis [Unknown]
